FAERS Safety Report 17036219 (Version 1)
Quarter: 2019Q4

REPORT INFORMATION
  Report Type: Spontaneous
  Country: US (occurrence: US)
  Receive Date: 20191115
  Receipt Date: 20191115
  Transmission Date: 20200122
  Serious: Yes (Other)
  Sender: FDA-Public Use
  Company Number: US-BAYER-2019-202692

PATIENT
  Age: 15 Year

DRUGS (1)
  1. KOGENATE FS [Suspect]
     Active Substance: ANTIHEMOPHILIC FACTOR, HUMAN RECOMBINANT
     Dosage: 1980 U
     Dates: start: 20191020, end: 20191106

REACTIONS (2)
  - Head injury [Recovered/Resolved]
  - Accident [Recovered/Resolved]

NARRATIVE: CASE EVENT DATE: 20191020
